FAERS Safety Report 12831833 (Version 1)
Quarter: 2016Q4

REPORT INFORMATION
  Report Type: Report from Study
  Country: US (occurrence: US)
  Receive Date: 20161010
  Receipt Date: 20161010
  Transmission Date: 20170207
  Serious: Yes (Hospitalization, Other)
  Sender: FDA-Public Use
  Company Number: US-ROCHE-784393

PATIENT
  Age: 52 Year
  Sex: Female

DRUGS (3)
  1. BEVACIZUMAB [Suspect]
     Active Substance: BEVACIZUMAB
     Indication: PAPILLARY SEROUS ENDOMETRIAL CARCINOMA
     Dosage: OVER 30-90 MIN ON DAY 1(CYCLE 21 DAYS) 6 CYCLES.
     Route: 042
  2. IXABEPILONE [Suspect]
     Active Substance: IXABEPILONE
     Indication: PAPILLARY SEROUS ENDOMETRIAL CARCINOMA
     Dosage: OVER 1 HR ON DAY 1 X 6 CYCLES
     Route: 042
  3. CARBOPLATIN. [Suspect]
     Active Substance: CARBOPLATIN
     Indication: PAPILLARY SEROUS ENDOMETRIAL CARCINOMA
     Dosage: AUC = 5 IV OVER 30 MINUTES ON DAY 1 X 6 CYCLES
     Route: 042

REACTIONS (12)
  - Clostridium difficile colitis [Unknown]
  - Clostridium difficile colitis [Unknown]
  - Hypokalaemia [Unknown]
  - Fatigue [Unknown]
  - Enterocolitis infectious [Unknown]
  - Cystitis [Unknown]
  - Febrile neutropenia [Unknown]
  - Dehydration [Unknown]
  - White blood cell count decreased [Unknown]
  - Anaemia [Unknown]
  - Neutrophil count decreased [Unknown]
  - Platelet count decreased [Unknown]

NARRATIVE: CASE EVENT DATE: 20110128
